FAERS Safety Report 23367810 (Version 1)
Quarter: 2024Q1

REPORT INFORMATION
  Report Type: Spontaneous
  Country: US (occurrence: US)
  Receive Date: 20240104
  Receipt Date: 20240104
  Transmission Date: 20240410
  Serious: No
  Sender: FDA-Public Use
  Company Number: US-BAXTER-2023BAX039296

PATIENT

DRUGS (1)
  1. EXTRANEAL [Suspect]
     Active Substance: CALCIUM CHLORIDE\ICODEXTRIN\MAGNESIUM CHLORIDE\SODIUM CHLORIDE\SODIUM LACTATE
     Dosage: LAST FILL OF 2500 ML
     Route: 033

REACTIONS (3)
  - Genital swelling [Unknown]
  - Abdominal distension [Unknown]
  - Procedural pain [Unknown]

NARRATIVE: CASE EVENT DATE: 20231225
